FAERS Safety Report 4863284-1 (Version None)
Quarter: 2005Q4

REPORT INFORMATION
  Report Type: 
  Country: None (occurrence: None)
  Receive Date: 20051222
  Receipt Date: 20051129
  Transmission Date: 20060501
  Serious: Yes (Hospitalization)
  Sender: FDA-Public Use
  Company Number: JP-SP-2005-02665

PATIENT
  Age: 78 Year
  Sex: Female

DRUGS (2)
  1. IMMUCYST [Suspect]
     Indication: CARCINOMA IN SITU OF BLADDER
     Route: 043
     Dates: start: 20051107, end: 20051107
  2. IMMUCYST [Suspect]
     Route: 043
     Dates: start: 20051107, end: 20051107

REACTIONS (2)
  - DYSURIA [None]
  - PYURIA [None]
